FAERS Safety Report 10162358 (Version 1)
Quarter: 2014Q2

REPORT INFORMATION
  Report Type: Spontaneous
  Country: US (occurrence: US)
  Receive Date: 20140509
  Receipt Date: 20140509
  Transmission Date: 20141212
  Serious: Yes (Hospitalization)
  Sender: FDA-Public Use
  Company Number: US-009507513-1405USA004343

PATIENT
  Age: 49 Year
  Sex: Female

DRUGS (13)
  1. CANCIDAS [Suspect]
     Dosage: 50 MG, QD WITH AN ^INITIAL DOSE OF 70MG^
     Route: 042
     Dates: start: 20140425
  2. CANCIDAS [Suspect]
     Dosage: 70 MG, ONCE
     Route: 042
     Dates: start: 20140425, end: 20140425
  3. TYLENOL [Concomitant]
     Dosage: UNK, PRN
  4. ACIDOPHILUS [Concomitant]
  5. ALPRAZOLAM [Concomitant]
  6. BISACODYL [Concomitant]
  7. FENTANYL [Concomitant]
     Route: 041
  8. HYDROMORPHONE [Concomitant]
  9. INSULIN [Concomitant]
  10. MAGNESIUM SULFATE [Concomitant]
  11. MINERAL OIL [Concomitant]
  12. PROPOFOL [Concomitant]
  13. MIDAZOLAM [Concomitant]

REACTIONS (1)
  - Anaemia [Not Recovered/Not Resolved]
